FAERS Safety Report 23014656 (Version 1)
Quarter: 2023Q4

REPORT INFORMATION
  Report Type: Spontaneous
  Country: CA (occurrence: CA)
  Receive Date: 20231002
  Receipt Date: 20231002
  Transmission Date: 20240110
  Serious: Yes (Other)
  Sender: FDA-Public Use
  Company Number: CA-Merck Healthcare KGaA-2023478139

PATIENT
  Age: 69 Year
  Sex: Male

DRUGS (1)
  1. BAVENCIO [Suspect]
     Active Substance: AVELUMAB
     Indication: Transitional cell carcinoma
     Route: 042
     Dates: start: 20211118

REACTIONS (2)
  - Immune-mediated neuropathy [Not Recovered/Not Resolved]
  - Immune-mediated arthritis [Not Recovered/Not Resolved]

NARRATIVE: CASE EVENT DATE: 20220918
